FAERS Safety Report 9046017 (Version 2)
Quarter: 2013Q1

REPORT INFORMATION
  Report Type: Spontaneous
  Country: US (occurrence: US)
  Receive Date: 20130201
  Receipt Date: 20130213
  Transmission Date: 20140127
  Serious: No
  Sender: FDA-Public Use
  Company Number: US-BIOGENIDEC-2013BI007735

PATIENT
  Age: 57 Year
  Sex: Male

DRUGS (1)
  1. TYSABRI [Suspect]
     Indication: MULTIPLE SCLEROSIS
     Route: 042
     Dates: start: 20120103, end: 20130107

REACTIONS (17)
  - Local swelling [Not Recovered/Not Resolved]
  - Poor venous access [Recovered/Resolved]
  - Balance disorder [Recovered/Resolved]
  - Gait disturbance [Recovered/Resolved]
  - Sensation of heaviness [Recovered/Resolved]
  - Mobility decreased [Recovered/Resolved]
  - Personality change [Recovered/Resolved]
  - Weight increased [Recovered/Resolved]
  - Memory impairment [Recovered/Resolved]
  - General symptom [Recovered/Resolved]
  - Adverse drug reaction [Recovered/Resolved]
  - Dysstasia [Unknown]
  - Pain [Unknown]
  - Arthralgia [Recovered/Resolved]
  - Dizziness [Recovered/Resolved]
  - Drug effect decreased [Recovered/Resolved]
  - Multiple sclerosis [Recovered/Resolved]
